FAERS Safety Report 8531018-5 (Version None)
Quarter: 2012Q3

REPORT INFORMATION
  Report Type: 
  Country: None (occurrence: None)
  Receive Date: 20120723
  Receipt Date: 20120712
  Transmission Date: 20120928
  Serious: Yes (Hospitalization)
  Sender: FDA-Public Use
  Company Number: DE-ASTRAZENECA-2012SE49626

PATIENT
  Age: 31436 Day
  Sex: Male

DRUGS (9)
  1. BRILINTA [Suspect]
     Route: 048
     Dates: start: 20110801, end: 20120102
  2. RAMIPRIL [Concomitant]
     Indication: HYPERTENSION
     Route: 048
  3. SIMVASTATIN [Concomitant]
     Indication: CORONARY ARTERY DISEASE
     Route: 048
  4. BRILINTA [Suspect]
     Route: 048
     Dates: start: 20120120, end: 20120709
  5. AMLODIPINE [Concomitant]
     Indication: HYPERTENSION
     Route: 048
     Dates: start: 20110526
  6. BRILINTA [Suspect]
     Indication: CORONARY ARTERY DISEASE
     Route: 048
     Dates: start: 20110526, end: 20110529
  7. ASPIRIN [Suspect]
     Route: 048
  8. PANTOPRAZOLE [Concomitant]
     Indication: GASTRIC DISORDER
     Route: 048
     Dates: start: 20110926
  9. PENTAERYTHRITOL TETRANITRATE [Concomitant]
     Indication: ANGINA PECTORIS
     Route: 048

REACTIONS (1)
  - MALLORY-WEISS SYNDROME [None]
